FAERS Safety Report 24901288 (Version 1)
Quarter: 2025Q1

REPORT INFORMATION
  Report Type: Spontaneous
  Country: FR (occurrence: FR)
  Receive Date: 20250129
  Receipt Date: 20250129
  Transmission Date: 20250408
  Serious: Yes (Hospitalization, Other)
  Sender: MERCK
  Company Number: None

PATIENT
  Age: 85 Year
  Sex: Male
  Weight: 62.2 kg

DRUGS (8)
  1. STROMECTOL [Suspect]
     Active Substance: IVERMECTIN
     Indication: Infection parasitic
     Route: 048
     Dates: start: 202412, end: 202412
  2. ALLOPURINOL [Suspect]
     Active Substance: ALLOPURINOL
     Indication: Chronic lymphocytic leukaemia
     Dosage: 300 MILLIGRAM, QD
     Route: 048
     Dates: start: 20241203, end: 20250102
  3. CHLORAMBUCIL [Suspect]
     Active Substance: CHLORAMBUCIL
     Indication: Chronic lymphocytic leukaemia
     Dosage: 4 MILLIGRAM, QD
     Route: 048
     Dates: start: 20241203, end: 20250102
  4. POLYETHYLENE GLYCOLS [Concomitant]
     Active Substance: POLYETHYLENE GLYCOLS
     Route: 048
  5. CHOLECALCIFEROL [Concomitant]
     Active Substance: CHOLECALCIFEROL
     Route: 048
  6. BENSERAZIDE HYDROCHLORIDE\LEVODOPA [Concomitant]
     Active Substance: BENSERAZIDE HYDROCHLORIDE\LEVODOPA
     Dosage: 925 MILLIGRAM, QD
     Route: 048
  7. GABAPENTIN [Concomitant]
     Active Substance: GABAPENTIN
     Dosage: 200 MILLIGRAM, QD
     Route: 048
  8. ACETAMINOPHEN [Concomitant]
     Active Substance: ACETAMINOPHEN
     Route: 048

REACTIONS (3)
  - Rash maculo-papular [Recovering/Resolving]
  - Purpura [Recovering/Resolving]
  - Agranulocytosis [Not Recovered/Not Resolved]

NARRATIVE: CASE EVENT DATE: 20241224
